FAERS Safety Report 5451183-6 (Version None)
Quarter: 2007Q3

REPORT INFORMATION
  Report Type: 
  Country: None (occurrence: None)
  Receive Date: 20070913
  Receipt Date: 20070910
  Transmission Date: 20080115
  Serious: Yes (Death, Life-Threatening, Other)
  Sender: FDA-Public Use
  Company Number: JP-AVENTIS-200712109JP

PATIENT
  Age: 83 Year
  Sex: Male
  Weight: 48 kg

DRUGS (9)
  1. TAXOTERE [Suspect]
     Indication: NON-SMALL CELL LUNG CANCER
     Route: 041
     Dates: start: 20070727, end: 20070727
  2. DECADRON [Concomitant]
     Indication: PREMEDICATION
     Route: 041
     Dates: start: 20070727, end: 20070727
  3. KYTRIL                             /01178101/ [Concomitant]
     Indication: PREMEDICATION
     Route: 041
     Dates: start: 20070727, end: 20070727
  4. PRORENAL [Concomitant]
     Route: 048
  5. HARNAL [Concomitant]
     Route: 048
  6. MUCOSAL [Concomitant]
     Route: 048
  7. ASPIRIN [Concomitant]
     Route: 048
  8. AMARYL [Concomitant]
     Route: 048
  9. BASEN [Concomitant]
     Route: 048

REACTIONS (6)
  - ANAPHYLACTOID SHOCK [None]
  - BLOOD PRESSURE DECREASED [None]
  - DYSPNOEA [None]
  - GASTROINTESTINAL HAEMORRHAGE [None]
  - PULMONARY ALVEOLAR HAEMORRHAGE [None]
  - URTICARIA [None]
